FAERS Safety Report 6301737-X (Version None)
Quarter: 2009Q3

REPORT INFORMATION
  Report Type: 
  Country: None (occurrence: None)
  Receive Date: 20090805
  Receipt Date: 20090724
  Transmission Date: 20100115
  Serious: Yes (Hospitalization)
  Sender: FDA-Public Use
  Company Number: 1-19289936

PATIENT
  Age: 56 Year
  Sex: Male

DRUGS (4)
  1. AMIODARONE HCL [Suspect]
     Indication: ATRIAL FIBRILLATION
     Dosage: 1200 MG (TOTAL), INTRAVENOUS
     Route: 042
  2. DIGOXIN [Concomitant]
  3. DOPAMINE HCL [Concomitant]
  4. UNSPECIFIED DIURETIC [Concomitant]

REACTIONS (3)
  - DRUG INEFFECTIVE [None]
  - HYPERTHYROIDISM [None]
  - INTERSTITIAL LUNG DISEASE [None]
